FAERS Safety Report 7969486-X (Version None)
Quarter: 2011Q4

REPORT INFORMATION
  Report Type: 
  Country: None (occurrence: None)
  Receive Date: 20111212
  Receipt Date: 20111201
  Transmission Date: 20120403
  Serious: Yes (Hospitalization)
  Sender: FDA-Public Use
  Company Number: US-BIOGENIDEC-2011BI045682

PATIENT
  Age: 66 Year
  Sex: Female

DRUGS (2)
  1. AVONEX [Suspect]
     Indication: MULTIPLE SCLEROSIS
     Route: 030
     Dates: start: 20100430
  2. AVONEX [Suspect]
     Route: 030
     Dates: start: 20030327, end: 20100227

REACTIONS (2)
  - BENIGN BONE NEOPLASM [None]
  - HYPOAESTHESIA ORAL [None]
